FAERS Safety Report 4599469-1 (Version None)
Quarter: 2005Q1

REPORT INFORMATION
  Report Type: 
  Country: None (occurrence: None)
  Receive Date: 20050307
  Receipt Date: 20031114
  Transmission Date: 20050727
  Serious: Yes (Hospitalization)
  Sender: FDA-Public Use
  Company Number: JP-SOLVAY-00303003316

PATIENT
  Age: 30081 Day
  Sex: Female
  Weight: 45 kg

DRUGS (9)
  1. LENDORM [Concomitant]
     Indication: INSOMNIA
     Dosage: DAILY DOSE: 0.25 MG. FREQUENCY:UNKNOWN
     Route: 048
     Dates: start: 20030911
  2. DEPROMEL 25 [Suspect]
     Indication: DEPRESSION
     Dosage: DAILY DOSE: 25 MG. FREQUENCY:UNKNOWN
     Route: 048
     Dates: start: 20030911, end: 20031016
  3. SERMION [Suspect]
     Indication: CEREBRAL CIRCULATORY FAILURE
     Dosage: DAILY DOSE: 15 MG. FREQUENCY:UNKNOWN
     Route: 048
     Dates: start: 20020617, end: 20031017
  4. ISALON [Concomitant]
     Indication: GASTRITIS
     Dosage: DAILY DOSE: 200 MG. FREQUENCY:UNKNOWN
     Route: 048
     Dates: start: 20030911
  5. AMLODIN [Suspect]
     Indication: HYPERTENSION
     Dosage: DAILY DOSE: 5 MG. FREQUENCY:UNKNOWN
     Route: 048
     Dates: start: 20020601, end: 20031017
  6. MUCOSOLVAN [Concomitant]
     Indication: BRONCHITIS CHRONIC
     Dosage: DAILY DOSE: 45 MG. FREQUENCY:UNKNOWN
     Route: 048
     Dates: start: 20030801
  7. CARDENALIN [Suspect]
     Indication: HYPERTENSION
     Dosage: DAILY DOSE: 2 MG. FREQUENCY:UNKNOWN
     Route: 048
     Dates: start: 20020901, end: 20031017
  8. LIPOVAS [Concomitant]
     Indication: HYPERLIPIDAEMIA
     Dosage: DAILY DOSE: 5 MG. FREQUENCY:UNKNOWN
     Route: 048
     Dates: start: 20030911
  9. RENIVACE [Suspect]
     Indication: HYPERTENSION
     Dosage: DAILY DOSE: 5 MG. FREQUENCY:UNKNOWN
     Route: 048
     Dates: start: 20030801, end: 20031017

REACTIONS (8)
  - ACTIVATED PARTIAL THROMBOPLASTIN TIME PROLONGED [None]
  - ANAEMIA [None]
  - FAECES HARD [None]
  - HAEMORRHAGIC DIATHESIS [None]
  - MELAENA [None]
  - PROTEIN TOTAL DECREASED [None]
  - RECTAL ULCER HAEMORRHAGE [None]
  - SHOCK [None]
